FAERS Safety Report 8884977 (Version 1)
Quarter: 2012Q4

REPORT INFORMATION
  Report Type: 
  Country: US (occurrence: US)
  Receive Date: 20121102
  Receipt Date: 20121102
  Transmission Date: 20130627
  Serious: No
  Sender: FDA-Public Use
  Company Number: US-BAYER-2012-114993

PATIENT
  Age: 74 Year
  Sex: Female
  Weight: 52.61 kg

DRUGS (7)
  1. ALEVE CAPLET/TABLET,MIDOL EXTENDED RELIEF CAPLET [Suspect]
     Indication: BACK ACHE
     Dosage: 1 DF, QD
     Route: 048
     Dates: start: 20121017, end: 20121023
  2. NATURES MADE CALCIUM-500MG [Concomitant]
  3. POTASSIUM [Concomitant]
  4. OMEGA 3 [Concomitant]
  5. AVAPRO [Concomitant]
  6. ACIPHEX [Concomitant]
  7. MAG 64 [Concomitant]

REACTIONS (1)
  - Constipation [Not Recovered/Not Resolved]
